FAERS Safety Report 8289191-2 (Version None)
Quarter: 2012Q2

REPORT INFORMATION
  Report Type: 
  Country: None (occurrence: None)
  Receive Date: 20120417
  Receipt Date: 20120412
  Transmission Date: 20120825
  Serious: Yes (Death)
  Sender: FDA-Public Use
  Company Number: PHEH2012US007938

PATIENT
  Sex: Male

DRUGS (2)
  1. EXJADE [Suspect]
     Indication: LYMPHATIC SYSTEM NEOPLASM
     Dosage: 1500 MG, DAILY
     Route: 048
     Dates: start: 20111011
  2. EXJADE [Suspect]
     Indication: HAEMATOPOIETIC NEOPLASM

REACTIONS (1)
  - DEATH [None]
